FAERS Safety Report 15452056 (Version 2)
Quarter: 2019Q2

REPORT INFORMATION
  Report Type: Spontaneous
  Country: GB (occurrence: GB)
  Receive Date: 20181001
  Receipt Date: 20190628
  Transmission Date: 20190711
  Serious: Yes (Death, Hospitalization)
  Sender: FDA-Public Use
  Company Number: GB-INCYTE CORPORATION-2018IN009707

PATIENT

DRUGS (1)
  1. JAKAVI [Suspect]
     Active Substance: RUXOLITINIB
     Indication: MYELOFIBROSIS
     Dosage: 15 MG, BID
     Route: 048
     Dates: start: 20170724

REACTIONS (4)
  - Pyrexia [Not Recovered/Not Resolved]
  - Confusional state [Unknown]
  - Dyspnoea [Not Recovered/Not Resolved]
  - Disseminated tuberculosis [Fatal]

NARRATIVE: CASE EVENT DATE: 20171016
